FAERS Safety Report 19133382 (Version 1)
Quarter: 2021Q2

REPORT INFORMATION
  Report Type: Report from Study
  Country: None (occurrence: DE)
  Receive Date: 20210413
  Receipt Date: 20210413
  Transmission Date: 20210717
  Serious: Yes (Hospitalization)
  Sender: FDA-Public Use
  Company Number: DE-ABBVIE-21K-062-3850256-00

PATIENT
  Sex: Female

DRUGS (2)
  1. HUMIRA [Suspect]
     Active Substance: ADALIMUMAB
     Indication: PSORIATIC ARTHROPATHY
     Route: 058
  2. BISOPROLOL [Concomitant]
     Active Substance: BISOPROLOL
     Indication: CARDIOVASCULAR DISORDER
     Route: 048
     Dates: start: 2015

REACTIONS (1)
  - Cardiac flutter [Recovered/Resolved]

NARRATIVE: CASE EVENT DATE: 20210330
